FAERS Safety Report 13504116 (Version 18)
Quarter: 2021Q2

REPORT INFORMATION
  Report Type: Report from Study
  Country: CA (occurrence: CA)
  Receive Date: 20170502
  Receipt Date: 20210525
  Transmission Date: 20210716
  Serious: Yes (Hospitalization, Other)
  Sender: FDA-Public Use
  Company Number: PHHY2017CA003453

PATIENT
  Age: 76 Year
  Sex: Male

DRUGS (11)
  1. SANDOSTATIN LAR DEPOT [Suspect]
     Active Substance: OCTREOTIDE ACETATE
  2. LUTETIUM (LU 177) [Concomitant]
     Active Substance: LUTETIUM LU-177
     Indication: PRODUCT USED FOR UNKNOWN INDICATION
     Dosage: UNK (COMPLETED HIS TREATMENT 10 DAYS AGO)
     Route: 065
     Dates: start: 20200922
  3. LASIX [Concomitant]
     Active Substance: FUROSEMIDE
     Dosage: 10 MG, QD
     Route: 065
  4. LASIX [Concomitant]
     Active Substance: FUROSEMIDE
     Dosage: 40 MG, QD
     Route: 065
  5. LASIX [Concomitant]
     Active Substance: FUROSEMIDE
     Dosage: 20 MG, BID (FOR 14 DAYS)
     Route: 065
  6. SANDOSTATIN LAR DEPOT [Suspect]
     Active Substance: OCTREOTIDE ACETATE
     Indication: CARCINOID TUMOUR
     Dosage: 20 MG, Q4W (EVERY 4 WEEKS)
     Route: 030
     Dates: start: 20161223
  7. LASIX [Concomitant]
     Active Substance: FUROSEMIDE
     Indication: PRODUCT USED FOR UNKNOWN INDICATION
     Dosage: 20 MG, QD
     Route: 065
  8. SANDOSTATIN [Suspect]
     Active Substance: OCTREOTIDE ACETATE
  9. SANDOSTATIN LAR DEPOT [Suspect]
     Active Substance: OCTREOTIDE ACETATE
  10. SANDOSTATIN [Suspect]
     Active Substance: OCTREOTIDE ACETATE
     Indication: CARCINOID TUMOUR
     Dosage: 50 UG, TID
     Route: 058
     Dates: start: 20161223, end: 20170105
  11. SANDOSTATIN [Suspect]
     Active Substance: OCTREOTIDE ACETATE
     Indication: PSORIASIS

REACTIONS (38)
  - Pulmonary embolism [Recovered/Resolved]
  - Loss of consciousness [Unknown]
  - Cardiac disorder [Unknown]
  - Insomnia [Unknown]
  - Carcinoid tumour [Unknown]
  - Lung disorder [Unknown]
  - Palpitations [Unknown]
  - Erythema [Recovered/Resolved]
  - Pulmonary oedema [Unknown]
  - Hepatic lesion [Unknown]
  - Blood pressure increased [Unknown]
  - Eczema [Unknown]
  - Dizziness [Unknown]
  - Dyspepsia [Unknown]
  - Renal impairment [Unknown]
  - Malignant neoplasm progression [Unknown]
  - Gastrooesophageal reflux disease [Unknown]
  - Pruritus [Unknown]
  - Carotid artery occlusion [Unknown]
  - Malaise [Unknown]
  - Stress [Unknown]
  - Blood pressure systolic increased [Unknown]
  - Headache [Unknown]
  - Nausea [Unknown]
  - Product use in unapproved indication [Unknown]
  - Dyspnoea [Unknown]
  - Fall [Recovered/Resolved]
  - Contusion [Unknown]
  - Abdominal pain [Unknown]
  - Cardio-respiratory arrest [Unknown]
  - Amnesia [Unknown]
  - Burning sensation [Recovered/Resolved]
  - Frequent bowel movements [Unknown]
  - Dysphagia [Unknown]
  - Chest pain [Recovered/Resolved]
  - Back pain [Unknown]
  - Acne [Unknown]
  - Blood pressure diastolic decreased [Unknown]

NARRATIVE: CASE EVENT DATE: 20170413
